FAERS Safety Report 7629837 (Version 3)
Quarter: 2015Q2

REPORT INFORMATION
  Report Type: Spontaneous
  Country: US (occurrence: US)
  Receive Date: 20101014
  Receipt Date: 20150402
  Transmission Date: 20150821
  Serious: Yes (Life-Threatening, Hospitalization, Congenital Anomaly, Other)
  Sender: FDA-Public Use
  Company Number: US-ELI_LILLY_AND_COMPANY-US201010001242

PATIENT
  Sex: Female

DRUGS (6)
  1. PROZAC [Suspect]
     Active Substance: FLUOXETINE HYDROCHLORIDE
     Indication: PRODUCT USED FOR UNKNOWN INDICATION
     Dosage: 20 MG, QD
     Route: 064
  2. CLARITIN [Concomitant]
     Active Substance: LORATADINE
     Route: 064
  3. UNI-DECON [Concomitant]
  4. UNI-DECON [Concomitant]
  5. CLARITIN [Concomitant]
     Active Substance: LORATADINE
     Route: 064
  6. PROZAC [Suspect]
     Active Substance: FLUOXETINE HYDROCHLORIDE
     Indication: PRODUCT USED FOR UNKNOWN INDICATION
     Dosage: 20 MG, QD
     Route: 064

REACTIONS (5)
  - Ankyloglossia congenital [Unknown]
  - Foetal exposure during pregnancy [Recovered/Resolved]
  - Shone complex [Recovered/Resolved]
  - Ventricular septal defect [Recovered/Resolved]
  - Atrial septal defect [Recovered/Resolved]

NARRATIVE: CASE EVENT DATE: 199901
